FAERS Safety Report 15297035 (Version 2)
Quarter: 2018Q4

REPORT INFORMATION
  Report Type: Other
  Country: JP (occurrence: JP)
  Receive Date: 20180820
  Receipt Date: 20181010
  Transmission Date: 20190204
  Serious: No
  Sender: FDA-Public Use
  Company Number: JP-LUNDBECK-DKLU2052042

PATIENT
  Age: 11 Week
  Sex: Male

DRUGS (11)
  1. SABRIL [Suspect]
     Active Substance: VIGABATRIN
     Dosage: IN TWO DIVIDED DOSES
     Route: 048
     Dates: start: 20170911
  2. SABRIL [Suspect]
     Active Substance: VIGABATRIN
     Dosage: IN TWO DIVIDED DOSES
     Route: 048
     Dates: start: 20170807, end: 20170910
  3. SABRIL [Suspect]
     Active Substance: VIGABATRIN
     Indication: INFANTILE SPASMS
     Dosage: IN TWO DIVIDED DOSES
     Route: 048
     Dates: start: 20170424, end: 20170427
  4. SABRIL [Suspect]
     Active Substance: VIGABATRIN
     Dosage: IN TWO DIVIDED DOSES
     Route: 048
     Dates: start: 20170502, end: 20170507
  5. SABRIL [Suspect]
     Active Substance: VIGABATRIN
     Dosage: IN TWO DIVIDED DOSES
     Route: 048
     Dates: start: 20170512, end: 20170515
  6. SABRIL [Suspect]
     Active Substance: VIGABATRIN
     Dosage: IN TWO DIVIDED DOSES
     Route: 048
     Dates: start: 20170522, end: 20170712
  7. VITAMIN B6 [Concomitant]
     Active Substance: PYRIDOXINE HYDROCHLORIDE
     Indication: INFANTILE SPASMS
     Route: 065
     Dates: start: 20170414, end: 20170423
  8. SABRIL [Suspect]
     Active Substance: VIGABATRIN
     Dosage: IN TWO DIVIDED DOSES
     Route: 048
     Dates: start: 20170508, end: 20170511
  9. SABRIL [Suspect]
     Active Substance: VIGABATRIN
     Dosage: IN TWO DIVIDED DOSES
     Route: 048
     Dates: start: 20170713, end: 20170806
  10. SABRIL [Suspect]
     Active Substance: VIGABATRIN
     Dosage: IN TWO DIVIDED DOSES
     Route: 048
     Dates: start: 20170428, end: 20170506
  11. SABRIL [Suspect]
     Active Substance: VIGABATRIN
     Dosage: IN TWO DIVIDED DOSES
     Route: 048
     Dates: start: 20170516, end: 20170521

REACTIONS (1)
  - Secretion discharge [Recovering/Resolving]

NARRATIVE: CASE EVENT DATE: 20170428
